FAERS Safety Report 7376438-X (Version None)
Quarter: 2011Q1

REPORT INFORMATION
  Report Type: 
  Country: None (occurrence: None)
  Receive Date: 20110317
  Receipt Date: 20110315
  Transmission Date: 20110831
  Serious: Yes (Hospitalization)
  Sender: FDA-Public Use
  Company Number: SP03549

PATIENT
  Age: 85 Year
  Sex: Female

DRUGS (3)
  1. BEZAFIBRATE [Concomitant]
  2. VISICOL [Suspect]
     Indication: BOWEL PREPARATION
     Dosage: (50 GM),ORAL
     Route: 048
     Dates: start: 20110208, end: 20110208
  3. CANDESARTAN CILEXETIL [Concomitant]

REACTIONS (5)
  - RENAL TUBULAR NECROSIS [None]
  - ACUTE PHOSPHATE NEPHROPATHY [None]
  - MALAISE [None]
  - HYPOAESTHESIA [None]
  - RENAL FAILURE ACUTE [None]
